FAERS Safety Report 24889686 (Version 1)
Quarter: 2025Q1

REPORT INFORMATION
  Report Type: Spontaneous
  Country: CN (occurrence: CN)
  Receive Date: 20250127
  Receipt Date: 20250127
  Transmission Date: 20250409
  Serious: Yes (Other)
  Sender: PFIZER
  Company Number: CN-PFIZER INC-PV202500010205

PATIENT
  Age: 19 Year
  Sex: Male

DRUGS (1)
  1. LITFULO [Suspect]
     Active Substance: RITLECITINIB TOSYLATE
     Dosage: 1 DF, 1X/DAY
     Route: 048
     Dates: start: 20240416

REACTIONS (2)
  - Hand fracture [Recovering/Resolving]
  - Alopecia [Recovering/Resolving]
